FAERS Safety Report 4730626-7 (Version None)
Quarter: 2005Q3

REPORT INFORMATION
  Report Type: 
  Country: None (occurrence: None)
  Receive Date: 20050801
  Receipt Date: 20031208
  Transmission Date: 20060218
  Serious: Yes (Other)
  Sender: FDA-Public Use
  Company Number: DE-SANOFI-SYNTHELABO-F01200301430

PATIENT
  Sex: Female

DRUGS (4)
  1. OXALIPLATIN [Suspect]
     Route: 042
     Dates: start: 20030313, end: 20030313
  2. CAPECITABINE [Suspect]
     Dosage: 1500 MG/M2 TWICE A DAY FOR 14 DAYS, Q3W
     Route: 048
     Dates: end: 20030313
  3. KEVATRIL [Concomitant]
     Dosage: UNK
     Route: 065
     Dates: start: 20030130, end: 20030313
  4. FORTECORTIN [Concomitant]
     Dosage: UNK
     Route: 065
     Dates: start: 20030130, end: 20030313

REACTIONS (4)
  - DRUG HYPERSENSITIVITY [None]
  - GENERALISED ERYTHEMA [None]
  - HYPERTENSION [None]
  - RESPIRATORY RATE INCREASED [None]
